FAERS Safety Report 12909756 (Version 1)
Quarter: 2016Q4

REPORT INFORMATION
  Report Type: Spontaneous
  Country: JP (occurrence: JP)
  Receive Date: 20161104
  Receipt Date: 20161104
  Transmission Date: 20170207
  Serious: Yes (Other)
  Sender: FDA-Public Use
  Company Number: PHJP2016JP031272

PATIENT

DRUGS (19)
  1. BASILIXIMAB [Suspect]
     Active Substance: BASILIXIMAB
     Indication: RENAL TRANSPLANT
     Dosage: UNK
     Route: 048
  2. MYCOPHENOLATE ACCORD [Concomitant]
     Active Substance: MYCOPHENOLIC ACID
     Dosage: 500 MG, UNK
     Route: 065
  3. CERTICAN [Suspect]
     Active Substance: EVEROLIMUS
     Dosage: 1 MG, UNK
     Route: 048
  4. CICLOSPORIN [Suspect]
     Active Substance: CYCLOSPORINE
     Dosage: 50 MG, UNK
     Route: 048
  5. MYCOPHENOLATE ACCORD [Concomitant]
     Active Substance: MYCOPHENOLIC ACID
     Dosage: 250 MG, UNK
     Route: 065
  6. MYCOPHENOLATE ACCORD [Concomitant]
     Active Substance: MYCOPHENOLIC ACID
     Dosage: 750 MG, UNK
     Route: 065
  7. CICLOSPORIN [Suspect]
     Active Substance: CYCLOSPORINE
     Indication: RENAL TRANSPLANT
     Dosage: 350 TO 400 MG, UNK
     Route: 048
  8. MYCOPHENOLATE ACCORD [Concomitant]
     Active Substance: MYCOPHENOLIC ACID
     Dosage: 500 MG, UNK
     Route: 065
  9. CERTICAN [Suspect]
     Active Substance: EVEROLIMUS
     Indication: RENAL TRANSPLANT
     Dosage: 1.5 MG, UNK
     Route: 048
  10. CICLOSPORIN [Suspect]
     Active Substance: CYCLOSPORINE
     Dosage: 100 MG, UNK
     Route: 048
  11. MYCOPHENOLATE ACCORD [Concomitant]
     Active Substance: MYCOPHENOLIC ACID
     Indication: RENAL TRANSPLANT
     Dosage: 500 MG, UNK
     Route: 065
  12. MYCOPHENOLATE ACCORD [Concomitant]
     Active Substance: MYCOPHENOLIC ACID
     Dosage: 1000 MG, UNK
     Route: 065
  13. CICLOSPORIN [Suspect]
     Active Substance: CYCLOSPORINE
     Dosage: 125 TO 300 MG, UNK
     Route: 048
  14. CICLOSPORIN [Suspect]
     Active Substance: CYCLOSPORINE
     Dosage: 75 MG, UNK
     Route: 048
  15. MYCOPHENOLATE ACCORD [Concomitant]
     Active Substance: MYCOPHENOLIC ACID
     Dosage: 1000 MG, UNK
     Route: 065
  16. CICLOSPORIN [Suspect]
     Active Substance: CYCLOSPORINE
     Dosage: 100 MG, UNK
     Route: 048
  17. MYCOPHENOLATE ACCORD [Concomitant]
     Active Substance: MYCOPHENOLIC ACID
     Dosage: 1500 MG, UNK
     Route: 065
  18. MYCOPHENOLATE ACCORD [Concomitant]
     Active Substance: MYCOPHENOLIC ACID
     Dosage: 1250 MG, UNK
     Route: 065
  19. MYCOPHENOLATE ACCORD [Concomitant]
     Active Substance: MYCOPHENOLIC ACID
     Dosage: 1000 MG, UNK
     Route: 065

REACTIONS (5)
  - Blood creatinine increased [Unknown]
  - White blood cell count decreased [Unknown]
  - Stomatitis [Unknown]
  - Blood cholesterol increased [Unknown]
  - Kidney transplant rejection [Unknown]
